FAERS Safety Report 11878659 (Version 1)
Quarter: 2015Q4

REPORT INFORMATION
  Report Type: Spontaneous
  Country: US (occurrence: None)
  Receive Date: 20151229
  Receipt Date: 20151229
  Transmission Date: 20160305
  Serious: No
  Sender: FDA-Public Use
  Company Number: None

PATIENT
  Age: 72 Year
  Sex: Male
  Weight: 88.45 kg

DRUGS (24)
  1. VITAMIN B12 [Concomitant]
     Active Substance: CYANOCOBALAMIN
  2. FOLIC ACID. [Concomitant]
     Active Substance: FOLIC ACID
  3. OMEGA 3 [Concomitant]
     Active Substance: OMEGA-3 FATTY ACIDS
  4. OIL COMPOUND MINERALS [Concomitant]
  5. VIAGRA [Suspect]
     Active Substance: SILDENAFIL CITRATE
     Indication: ERECTILE DYSFUNCTION
     Dates: start: 20151015, end: 20151113
  6. CHLOROQUINE. [Concomitant]
     Active Substance: CHLOROQUINE
  7. VITAMIN SUPPLEMENTS [Concomitant]
     Active Substance: VITAMINS
  8. CALCIUM /VITAMIN D [Concomitant]
  9. L ARGININE [Concomitant]
     Active Substance: ARGININE
  10. HYA;IRPMOCSUPPARTZ [Concomitant]
  11. VITAMIN C [Concomitant]
     Active Substance: ASCORBIC ACID
  12. GLUCOSAMINE/CHONODROITIN/MSN [Concomitant]
  13. NITRIC OXIDE. [Concomitant]
     Active Substance: NITRIC OXIDE
  14. VITAMIN E [Concomitant]
     Active Substance: .ALPHA.-TOCOPHEROL
  15. MICROLACTIN GIN SOAKED RAISINS [Concomitant]
  16. S-ADENOSYLMETHIONINE SULFATE P-TOLUENESULFONATE [Concomitant]
     Active Substance: ADEMETIONINE SULFATE TOSILATE
  17. MAGNESIUM [Concomitant]
     Active Substance: MAGNESIUM
  18. NIACINAMIDE [Concomitant]
     Active Substance: NIACINAMIDE
  19. COENZYME Q10 [Concomitant]
     Active Substance: UBIDECARENONE
  20. TRAMADOL. [Concomitant]
     Active Substance: TRAMADOL
  21. SAW PALMETTO [Concomitant]
     Active Substance: SAW PALMETTO
  22. L-GLUTAMINE /00503401/ [Concomitant]
     Active Substance: GLUTAMINE
  23. SIMVASTATIN. [Concomitant]
     Active Substance: SIMVASTATIN
  24. GINGER ROOT [Concomitant]

REACTIONS (4)
  - Syncope [None]
  - Drug interaction [None]
  - Product tampering [None]
  - Loss of consciousness [None]

NARRATIVE: CASE EVENT DATE: 20151113
